FAERS Safety Report 6015861-2 (Version None)
Quarter: 2008Q4

REPORT INFORMATION
  Report Type: 
  Country: None (occurrence: None)
  Receive Date: 20081222
  Receipt Date: 20081219
  Transmission Date: 20090506
  Serious: Yes (Death, Hospitalization)
  Sender: FDA-Public Use
  Company Number: A0761175A

PATIENT
  Age: 77 Year
  Sex: Male
  Weight: 72.7 kg

DRUGS (3)
  1. AVANDIA [Suspect]
     Route: 048
     Dates: start: 20050101, end: 20061228
  2. GLYBURIDE [Concomitant]
  3. ENALAPRIL MALEATE [Concomitant]

REACTIONS (1)
  - MYOCARDIAL INFARCTION [None]
